FAERS Safety Report 6545549-0 (Version None)
Quarter: 2010Q1

REPORT INFORMATION
  Report Type: 
  Country: None (occurrence: None)
  Receive Date: 20100121
  Receipt Date: 20100112
  Transmission Date: 20100710
  Serious: Yes (Disabling)
  Sender: FDA-Public Use
  Company Number: GB-PFIZER INC-2008031913

PATIENT
  Age: 41 Year
  Sex: Female

DRUGS (3)
  1. CHAMPIX [Suspect]
     Indication: SMOKING CESSATION THERAPY
     Dosage: 1 MG, 2X/DAY
     Route: 048
     Dates: start: 20080125, end: 20080323
  2. FLUOXETINE [Concomitant]
     Indication: DEPRESSION
     Dosage: 20 MG, 1X/DAY
  3. FLUOXETINE [Concomitant]
     Dosage: 40 MG, 1X/DAY

REACTIONS (3)
  - DEPRESSION [None]
  - PARANOIA [None]
  - PERSECUTORY DELUSION [None]
